FAERS Safety Report 23663303 (Version 3)
Quarter: 2024Q2

REPORT INFORMATION
  Report Type: Spontaneous
  Country: PL (occurrence: PL)
  Receive Date: 20240322
  Receipt Date: 20240429
  Transmission Date: 20240716
  Serious: Yes (Hospitalization)
  Sender: FDA-Public Use
  Company Number: PL-Accord-413895

PATIENT
  Age: 41 Year
  Sex: Male

DRUGS (9)
  1. SERTRALINE [Interacting]
     Active Substance: SERTRALINE HYDROCHLORIDE
     Indication: Insomnia
     Dosage: 50 MG IN THE MORNING
  2. ACETAMINOPHEN [Interacting]
     Active Substance: ACETAMINOPHEN
     Indication: Visceral pain
     Dosage: 3 X 1 G
  3. PREGABALIN [Interacting]
     Active Substance: PREGABALIN
     Indication: Visceral pain
     Dosage: 2 X 300 MG
  4. FENTANYL [Interacting]
     Active Substance: FENTANYL\FENTANYL CITRATE
     Indication: Visceral pain
     Dosage: AT A DOSE OF 50 UG/H
     Route: 062
  5. MIANSERIN [Interacting]
     Active Substance: MIANSERIN
     Indication: Insomnia
     Dosage: 30 MG AT NIGHT
  6. BUTYLSCOPOLAMINE BROMIDE [Interacting]
     Active Substance: BUTYLSCOPOLAMINE BROMIDE
     Indication: Visceral pain
     Dosage: AT A DOSE OF 3 X 10 MG
     Route: 048
  7. FENTANYL [Interacting]
     Active Substance: FENTANYL\FENTANYL CITRATE
     Indication: Visceral pain
     Dosage: INTRANASAL
     Route: 045
  8. FENTANYL [Interacting]
     Active Substance: FENTANYL\FENTANYL CITRATE
     Indication: Visceral pain
     Dosage: AT A DOSE OF 100 UG/H
     Route: 062
  9. FENTANYL [Interacting]
     Active Substance: FENTANYL\FENTANYL CITRATE
     Indication: Visceral pain
     Dosage: 200 UG AS NEEDED FOR BREAKTHROUGH PAIN
     Route: 062

REACTIONS (4)
  - Off label use [Unknown]
  - Drug interaction [Unknown]
  - Hyperaesthesia [Recovered/Resolved]
  - Hypersomnia [Unknown]
